FAERS Safety Report 25470804 (Version 1)
Quarter: 2025Q2

REPORT INFORMATION
  Report Type: Spontaneous
  Country: FR (occurrence: FR)
  Receive Date: 20250624
  Receipt Date: 20250624
  Transmission Date: 20250716
  Serious: Yes (Death, Hospitalization)
  Sender: ALEXION PHARMACEUTICALS
  Company Number: None

PATIENT
  Age: 68 Year
  Weight: 65.5 kg

DRUGS (1)
  1. IMFINZI [Suspect]
     Active Substance: DURVALUMAB
     Indication: Lung cancer metastatic

REACTIONS (3)
  - Paraneoplastic encephalomyelitis [Fatal]
  - Enteritis [Unknown]
  - Distal intestinal obstruction syndrome [Recovered/Resolved with Sequelae]
